FAERS Safety Report 6566587-8 (Version None)
Quarter: 2010Q1

REPORT INFORMATION
  Report Type: 
  Country: None (occurrence: None)
  Receive Date: 20100129
  Receipt Date: 20090612
  Transmission Date: 20100710
  Serious: Yes (Other)
  Sender: FDA-Public Use
  Company Number: 2009BH010023

PATIENT
  Age: 58 Year
  Sex: Male

DRUGS (5)
  1. DIANEAL [Suspect]
     Indication: PERITONEAL DIALYSIS
     Dosage: 12 L; EVERY DAY; IP, 12 L; EVERY DAY; IP
     Route: 033
     Dates: start: 19980101
  2. DIANEAL [Suspect]
     Indication: PERITONEAL DIALYSIS
     Dosage: 12 L; EVERY DAY; IP, 12 L; EVERY DAY; IP
     Route: 033
     Dates: start: 19980101
  3. DIANEAL [Suspect]
  4. HEPARIN [Concomitant]
  5. 15% CLINISOL - SULFITE-FREE (AMINO ACID) [Concomitant]

REACTIONS (2)
  - DEVICE LEAKAGE [None]
  - PERITONITIS BACTERIAL [None]
